FAERS Safety Report 7199871-8 (Version None)
Quarter: 2010Q4

REPORT INFORMATION
  Report Type: 
  Country: None (occurrence: None)
  Receive Date: 20101228
  Receipt Date: 20101216
  Transmission Date: 20110411
  Serious: Yes (Hospitalization, Other)
  Sender: FDA-Public Use
  Company Number: IT-BAYER-2010-005271

PATIENT
  Sex: Male

DRUGS (12)
  1. CARDIOASPIRIN [Suspect]
     Indication: PROPHYLAXIS
     Dosage: 100 MG, QD
     Route: 048
     Dates: start: 20101022, end: 20101105
  2. PLAVIX [Suspect]
     Indication: PROPHYLAXIS
     Dosage: 75 MG, QD
     Route: 048
     Dates: start: 20101022, end: 20101105
  3. PLAVIX [Suspect]
     Dosage: UNK
     Dates: start: 20101107
  4. NORVASC [Concomitant]
     Dosage: 10 MG, UNK
     Route: 048
  5. TORVAST [Concomitant]
     Dosage: 20 MG, UNK
     Route: 048
  6. TENORMIN [Concomitant]
     Dosage: 50 MG, UNK
     Route: 048
  7. LASIX [Concomitant]
     Dosage: 500 MG, UNK
     Route: 048
  8. HUMALOG [Concomitant]
     Dosage: 20 IU, UNK
     Route: 058
  9. HUMULIN [INSULIN HUMAN] [Concomitant]
     Dosage: 10 IU, UNK
     Route: 058
  10. CLEXANE [Concomitant]
     Dosage: 6000 IU, UNK
     Dates: start: 20101106
  11. ASPIRIN [Concomitant]
     Dosage: 160 MG, UNK
     Dates: start: 20101112, end: 20101122
  12. ASPIRIN [Concomitant]
     Dosage: 75 MG, UNK
     Dates: start: 20101203

REACTIONS (3)
  - ANAEMIA [None]
  - MELAENA [None]
  - RECTAL HAEMORRHAGE [None]
